FAERS Safety Report 6418907-2 (Version None)
Quarter: 2009Q4

REPORT INFORMATION
  Report Type: 
  Country: None (occurrence: None)
  Receive Date: 20091028
  Receipt Date: 20091028
  Transmission Date: 20100525
  Serious: Yes (Hospitalization, Disabling, Other)
  Sender: FDA-Public Use
  Company Number: None

PATIENT
  Age: 66 Year
  Sex: Female
  Weight: 62.5964 kg

DRUGS (1)
  1. FOSAMAX [Suspect]
     Indication: OSTEOPENIA
     Dosage: ONE W/8OZ H20 1 H BEFORE FOOD ONCE WEEKLY PO
     Route: 048
     Dates: start: 20000610, end: 20090823

REACTIONS (6)
  - ECONOMIC PROBLEM [None]
  - FALL [None]
  - FEMUR FRACTURE [None]
  - IMPAIRED WORK ABILITY [None]
  - THROMBOSIS [None]
  - URINARY TRACT INFECTION [None]
